FAERS Safety Report 4322858-7 (Version None)
Quarter: 2004Q1

REPORT INFORMATION
  Report Type: 
  Country: None (occurrence: None)
  Receive Date: 20040322
  Receipt Date: 20040316
  Transmission Date: 20041129
  Serious: Yes (Hospitalization)
  Sender: FDA-Public Use
  Company Number: 006#3#2004-00013

PATIENT
  Age: 89 Year
  Sex: Female

DRUGS (2)
  1. ISOSORBIDE DINITRATE [Suspect]
     Dates: start: 20030929, end: 20030929
  2. ALDALIX (FUROSEMIDE, SPIRONOLACTONE) [Concomitant]

REACTIONS (2)
  - FALL [None]
  - ORTHOSTATIC HYPOTENSION [None]
